FAERS Safety Report 26183956 (Version 1)
Quarter: 2025Q4

REPORT INFORMATION
  Report Type: Spontaneous
  Country: US (occurrence: US)
  Receive Date: 20251222
  Receipt Date: 20251222
  Transmission Date: 20260117
  Serious: Yes (Life-Threatening, Hospitalization)
  Sender: TEVA
  Company Number: US-TEVA-VS-3404074

PATIENT
  Age: 16 Year
  Sex: Female
  Weight: 52.5 kg

DRUGS (1)
  1. PERAMPANEL [Suspect]
     Active Substance: PERAMPANEL
     Indication: Seizure
     Route: 048

REACTIONS (11)
  - Agitation [Unknown]
  - Sinus tachycardia [Unknown]
  - Behaviour disorder [Unknown]
  - Intentional overdose [Unknown]
  - Toxicity to various agents [Unknown]
  - Depressed level of consciousness [Unknown]
  - Ataxia [Recovered/Resolved]
  - Dysarthria [Recovered/Resolved]
  - Dyskinesia [Unknown]
  - Aphasia [Recovered/Resolved]
  - Muscle rigidity [Unknown]
